FAERS Safety Report 9845174 (Version 2)
Quarter: 2014Q1

REPORT INFORMATION
  Report Type: Report from Study
  Country: ES (occurrence: ES)
  Receive Date: 20140127
  Receipt Date: 20140220
  Transmission Date: 20141002
  Serious: Yes (Life-Threatening)
  Sender: FDA-Public Use
  Company Number: ES-BEH-2014040291

PATIENT
  Age: 54 Year
  Sex: Female
  Weight: 90 kg

DRUGS (4)
  1. RIASTAP OR PLACEBO [Suspect]
     Indication: LIVER TRANSPLANT
     Route: 042
     Dates: start: 20130510, end: 20130510
  2. RIASTAP OR PLACEBO [Suspect]
     Indication: HAEMORRHAGE
     Route: 042
     Dates: start: 20130510, end: 20130510
  3. RIASTAP OR PLACEBO [Suspect]
     Route: 042
     Dates: start: 20130510, end: 20130510
  4. RIASTAP OR PLACEBO [Suspect]
     Route: 042
     Dates: start: 20130510, end: 20130510

REACTIONS (4)
  - Shock haemorrhagic [Recovered/Resolved]
  - Procedural haemorrhage [Recovered/Resolved]
  - Renal failure acute [Recovered/Resolved]
  - Vascular pseudoaneurysm ruptured [Recovered/Resolved]
